FAERS Safety Report 5245235-3 (Version None)
Quarter: 2007Q1

REPORT INFORMATION
  Report Type: 
  Country: None (occurrence: None)
  Receive Date: 20070223
  Receipt Date: 20070212
  Transmission Date: 20070707
  Serious: Yes (Other)
  Sender: FDA-Public Use
  Company Number: PHNU2007DE00863

PATIENT
  Sex: Female

DRUGS (3)
  1. FEMARA [Suspect]
     Indication: BREAST CANCER
     Route: 048
     Dates: start: 20050110, end: 20050822
  2. VITAMIN D [Concomitant]
     Route: 065
  3. CALCIUM [Concomitant]
     Route: 065

REACTIONS (5)
  - ARTHRALGIA [None]
  - CATARACT [None]
  - CORNEAL EXFOLIATION [None]
  - DRUG INTOLERANCE [None]
  - SENSORY DISTURBANCE [None]
